FAERS Safety Report 7330823-0 (Version None)
Quarter: 2011Q1

REPORT INFORMATION
  Report Type: 
  Country: None (occurrence: None)
  Receive Date: 20110304
  Receipt Date: 20110228
  Transmission Date: 20110831
  Serious: Yes (Other)
  Sender: FDA-Public Use
  Company Number: US-PFIZER INC-2010094212

PATIENT
  Sex: Female
  Weight: 61.4 kg

DRUGS (2)
  1. DEPO-PROVERA [Suspect]
     Dosage: 150 MG, EVERY 3 MONTHS
     Dates: start: 20100329
  2. DEPO-PROVERA [Suspect]
     Indication: CONTRACEPTION
     Dosage: 150 MG, UNK
     Dates: start: 20090724, end: 20090724

REACTIONS (2)
  - VAGINAL HAEMORRHAGE [None]
  - PELVIC PAIN [None]
